FAERS Safety Report 6548876-6 (Version None)
Quarter: 2010Q1

REPORT INFORMATION
  Report Type: 
  Country: None (occurrence: None)
  Receive Date: 20100125
  Receipt Date: 20100119
  Transmission Date: 20100710
  Serious: Yes (Other)
  Sender: FDA-Public Use
  Company Number: US-ASTRAZENECA-2007UW11543

PATIENT
  Age: 51 Year
  Sex: Male
  Weight: 74.8 kg

DRUGS (26)
  1. SEROQUEL [Suspect]
     Indication: SLEEP DISORDER
     Route: 048
     Dates: start: 20030801, end: 20080208
  2. SEROQUEL [Suspect]
     Indication: SCHIZOPHRENIA
     Route: 048
     Dates: start: 20030801, end: 20080208
  3. SEROQUEL [Suspect]
     Indication: BIPOLAR DISORDER
     Route: 048
     Dates: start: 20030801, end: 20080208
  4. SEROQUEL [Suspect]
     Indication: DEPRESSION
     Route: 048
     Dates: start: 20030801, end: 20080208
  5. SEROQUEL [Suspect]
     Route: 048
     Dates: start: 20030101, end: 20080101
  6. SEROQUEL [Suspect]
     Route: 048
     Dates: start: 20030101, end: 20080101
  7. SEROQUEL [Suspect]
     Route: 048
     Dates: start: 20030101, end: 20080101
  8. SEROQUEL [Suspect]
     Route: 048
     Dates: start: 20030101, end: 20080101
  9. SEROQUEL [Suspect]
     Route: 048
     Dates: start: 20080101, end: 20080208
  10. SEROQUEL [Suspect]
     Route: 048
     Dates: start: 20080101, end: 20080208
  11. SEROQUEL [Suspect]
     Route: 048
     Dates: start: 20080101, end: 20080208
  12. SEROQUEL [Suspect]
     Route: 048
     Dates: start: 20080101, end: 20080208
  13. HALDOL [Concomitant]
     Indication: SCHIZOPHRENIA
     Dosage: 2-5 MG
     Dates: start: 19710101
  14. HALDOL [Concomitant]
     Indication: BIPOLAR DISORDER
     Dosage: 2-5 MG
     Dates: start: 19710101
  15. HALDOL [Concomitant]
     Indication: DEPRESSION
     Dosage: 2-5 MG
     Dates: start: 19710101
  16. ZYPREXA [Concomitant]
     Indication: SCHIZOPHRENIA
     Dates: start: 20050101
  17. ZYPREXA [Concomitant]
     Indication: BIPOLAR DISORDER
     Dates: start: 20050101
  18. ZYPREXA [Concomitant]
     Indication: DEPRESSION
     Dates: start: 20050101
  19. LIPITOR [Concomitant]
  20. RISPERDAL [Concomitant]
     Dates: start: 20070101
  21. DEPAKOTE [Concomitant]
     Indication: SCHIZOPHRENIA
     Dates: start: 20030101
  22. DEPAKOTE [Concomitant]
     Indication: BIPOLAR DISORDER
     Dates: start: 20030101
  23. DEPAKOTE [Concomitant]
     Indication: DEPRESSION
     Dates: start: 20030101
  24. BENZATROPINE [Concomitant]
     Indication: SCHIZOPHRENIA
  25. BENZATROPINE [Concomitant]
     Indication: BIPOLAR DISORDER
  26. BENZATROPINE [Concomitant]
     Indication: DEPRESSION

REACTIONS (7)
  - BLOOD CHOLESTEROL INCREASED [None]
  - BLOOD TRIGLYCERIDES INCREASED [None]
  - DIABETES MELLITUS [None]
  - EYE DISORDER [None]
  - HYPERLIPIDAEMIA [None]
  - ILL-DEFINED DISORDER [None]
  - NEUROPATHY PERIPHERAL [None]
